FAERS Safety Report 18914890 (Version 1)
Quarter: 2021Q1

REPORT INFORMATION
  Report Type: Spontaneous
  Country: GB (occurrence: GB)
  Receive Date: 20210218
  Receipt Date: 20210218
  Transmission Date: 20210420
  Serious: Yes (Life-Threatening, Disabling)
  Sender: FDA-Public Use
  Company Number: None

PATIENT
  Age: 46 Year
  Sex: Male
  Weight: 68.4 kg

DRUGS (3)
  1. EFFEXOR [Concomitant]
     Active Substance: VENLAFAXINE HYDROCHLORIDE
  2. VIT D [Concomitant]
     Active Substance: VITAMIN D NOS
  3. MIRTAZAPINE 15MG TABLETS [Suspect]
     Active Substance: MIRTAZAPINE
     Indication: DEPRESSION
     Dosage: ?          QUANTITY:2 TABLET(S);?
     Route: 048

REACTIONS (10)
  - Mental fatigue [None]
  - Blood glucose abnormal [None]
  - Muscle spasms [None]
  - Initial insomnia [None]
  - Disturbance in attention [None]
  - Mental disorder [None]
  - Sleep terror [None]
  - Somnolence [None]
  - Loss of personal independence in daily activities [None]
  - Hypertension [None]

NARRATIVE: CASE EVENT DATE: 20200105
